FAERS Safety Report 5150859-8 (Version None)
Quarter: 2006Q4

REPORT INFORMATION
  Report Type: 
  Country: None (occurrence: None)
  Receive Date: 20061108
  Receipt Date: 20061025
  Transmission Date: 20070319
  Serious: Yes (Hospitalization, Other)
  Sender: FDA-Public Use
  Company Number: 2006117319

PATIENT
  Age: 58 Year
  Sex: Male
  Weight: 68 kg

DRUGS (5)
  1. SUTENT [Suspect]
     Indication: METASTASES TO LUNG
     Dosage: 50 MG
     Dates: start: 20060912
  2. SUTENT [Suspect]
     Indication: RENAL CELL CARCINOMA STAGE UNSPECIFIED
     Dosage: 50 MG
     Dates: start: 20060912
  3. COMBIVENT [Concomitant]
  4. SERETIDE (FLUTICASONE PROPIONATE, SALMETEROL XINAFOATE) [Concomitant]
  5. ACETAMINOPHEN [Concomitant]

REACTIONS (12)
  - BLOOD PRESSURE INCREASED [None]
  - CARDIAC FAILURE [None]
  - DIARRHOEA [None]
  - DYSGEUSIA [None]
  - EMPHYSEMA [None]
  - ERYTHEMA [None]
  - INTESTINAL HAEMORRHAGE [None]
  - PAIN IN EXTREMITY [None]
  - PENIS DISORDER [None]
  - PNEUMONIA [None]
  - RECTAL HAEMORRHAGE [None]
  - VOMITING [None]
